FAERS Safety Report 23948809 (Version 6)
Quarter: 2025Q2

REPORT INFORMATION
  Report Type: Report from Study
  Country: CN (occurrence: CN)
  Receive Date: 20240607
  Receipt Date: 20250609
  Transmission Date: 20250716
  Serious: No
  Sender: ROCHE
  Company Number: CN-ROCHE-3577099

PATIENT
  Age: 79 Year
  Sex: Male
  Weight: 78 kg

DRUGS (58)
  1. POLATUZUMAB VEDOTIN [Suspect]
     Active Substance: POLATUZUMAB VEDOTIN
     Indication: Diffuse large B-cell lymphoma
     Route: 042
     Dates: start: 20230821, end: 20230821
  2. RITUXIMAB [Suspect]
     Active Substance: RITUXIMAB
     Indication: Diffuse large B-cell lymphoma
     Route: 042
     Dates: start: 20230818, end: 20230818
  3. RITUXIMAB [Suspect]
     Active Substance: RITUXIMAB
     Route: 042
     Dates: start: 20230906, end: 20230906
  4. RITUXIMAB [Suspect]
     Active Substance: RITUXIMAB
     Route: 042
     Dates: start: 20230925, end: 20230925
  5. RITUXIMAB [Suspect]
     Active Substance: RITUXIMAB
     Route: 042
     Dates: start: 20231017, end: 20231017
  6. RITUXIMAB [Suspect]
     Active Substance: RITUXIMAB
     Route: 042
     Dates: start: 20231118, end: 20231118
  7. RITUXIMAB [Suspect]
     Active Substance: RITUXIMAB
     Route: 042
     Dates: start: 20231206, end: 20231206
  8. CYCLOPHOSPHAMIDE [Suspect]
     Active Substance: CYCLOPHOSPHAMIDE
     Indication: Diffuse large B-cell lymphoma
     Route: 042
     Dates: start: 20230818, end: 20230818
  9. DOXORUBICIN [Suspect]
     Active Substance: DOXORUBICIN
     Indication: Diffuse large B-cell lymphoma
     Route: 042
     Dates: start: 20230818, end: 20230818
  10. PREDNISONE [Suspect]
     Active Substance: PREDNISONE
     Indication: Diffuse large B-cell lymphoma
     Route: 048
     Dates: start: 20230818, end: 20230822
  11. PANTOPRAZOLE [Concomitant]
     Active Substance: PANTOPRAZOLE
     Route: 048
     Dates: start: 20230925, end: 20230925
  12. PANTOPRAZOLE [Concomitant]
     Active Substance: PANTOPRAZOLE
     Route: 048
     Dates: start: 20231017, end: 20231017
  13. PANTOPRAZOLE [Concomitant]
     Active Substance: PANTOPRAZOLE
     Route: 048
     Dates: start: 20230818, end: 20230818
  14. PANTOPRAZOLE [Concomitant]
     Active Substance: PANTOPRAZOLE
     Route: 048
     Dates: start: 20230907, end: 20230907
  15. PANTOPRAZOLE [Concomitant]
     Active Substance: PANTOPRAZOLE
     Route: 048
     Dates: start: 20230925, end: 20230925
  16. IBUPROFEN [Concomitant]
     Active Substance: IBUPROFEN
     Route: 048
     Dates: start: 20231016, end: 20231016
  17. IBUPROFEN [Concomitant]
     Active Substance: IBUPROFEN
     Route: 048
     Dates: start: 20230821
  18. IBUPROFEN [Concomitant]
     Active Substance: IBUPROFEN
     Route: 048
     Dates: start: 20230818, end: 20230818
  19. IBUPROFEN [Concomitant]
     Active Substance: IBUPROFEN
     Dosage: FREQUENCY: ONCE
     Route: 048
     Dates: start: 20230905, end: 20230905
  20. IBUPROFEN [Concomitant]
     Active Substance: IBUPROFEN
     Dosage: FREQUENCY: ONCE
     Route: 048
     Dates: start: 20230905, end: 20230905
  21. IBUPROFEN [Concomitant]
     Active Substance: IBUPROFEN
     Dosage: FREQUENCY: ONCE
     Route: 048
     Dates: start: 20230907, end: 20230907
  22. IBUPROFEN [Concomitant]
     Active Substance: IBUPROFEN
     Dosage: FREQUENCY: ONCE
     Route: 048
     Dates: start: 20230925, end: 20230925
  23. DIPHENHYDRAMINE HYDROCHLORIDE [Concomitant]
     Active Substance: DIPHENHYDRAMINE HYDROCHLORIDE
     Route: 042
     Dates: start: 20231016, end: 20231016
  24. DIPHENHYDRAMINE HYDROCHLORIDE [Concomitant]
     Active Substance: DIPHENHYDRAMINE HYDROCHLORIDE
     Route: 030
     Dates: start: 20230821, end: 20230821
  25. DIPHENHYDRAMINE HYDROCHLORIDE [Concomitant]
     Active Substance: DIPHENHYDRAMINE HYDROCHLORIDE
     Route: 030
     Dates: start: 20230818, end: 20230818
  26. DIPHENHYDRAMINE HYDROCHLORIDE [Concomitant]
     Active Substance: DIPHENHYDRAMINE HYDROCHLORIDE
     Route: 030
     Dates: start: 20230907, end: 20230907
  27. DIPHENHYDRAMINE HYDROCHLORIDE [Concomitant]
     Active Substance: DIPHENHYDRAMINE HYDROCHLORIDE
     Route: 030
     Dates: start: 20230925, end: 20230925
  28. DEXAMETHASONE SODIUM PHOSPHATE [Concomitant]
     Active Substance: DEXAMETHASONE SODIUM PHOSPHATE
     Dosage: FREQUENCY: ONCE
     Route: 042
     Dates: start: 20230818, end: 20230818
  29. DEXAMETHASONE SODIUM PHOSPHATE [Concomitant]
     Active Substance: DEXAMETHASONE SODIUM PHOSPHATE
     Dosage: FREQUENCY: ONCE
     Route: 042
     Dates: start: 20230905, end: 20230905
  30. DEXAMETHASONE SODIUM PHOSPHATE [Concomitant]
     Active Substance: DEXAMETHASONE SODIUM PHOSPHATE
     Dosage: FREQUENCY: ONCE
     Route: 042
     Dates: start: 20230907, end: 20230907
  31. DEXAMETHASONE SODIUM PHOSPHATE [Concomitant]
     Active Substance: DEXAMETHASONE SODIUM PHOSPHATE
     Dosage: FREQUENCY: ONCE
     Route: 042
     Dates: start: 20230925, end: 20230925
  32. LIDOCAINE HYDROCHLORIDE [Concomitant]
     Active Substance: LIDOCAINE HYDROCHLORIDE
     Route: 058
     Dates: start: 20230817, end: 20230817
  33. PROMETHAZINE HYDROCHLORIDE [Concomitant]
     Active Substance: PROMETHAZINE HYDROCHLORIDE
     Route: 030
     Dates: start: 20230818, end: 20230818
  34. FELODIPINE [Concomitant]
     Active Substance: FELODIPINE
     Route: 048
     Dates: start: 20230925, end: 20230925
  35. FELODIPINE [Concomitant]
     Active Substance: FELODIPINE
     Route: 048
     Dates: start: 20230817, end: 20230817
  36. ALLOPURINOL [Concomitant]
     Active Substance: ALLOPURINOL
     Route: 048
     Dates: start: 20230907, end: 20230907
  37. ALLOPURINOL [Concomitant]
     Active Substance: ALLOPURINOL
     Route: 048
     Dates: start: 20230818, end: 20230818
  38. SULFAMETHOXAZOLE [Concomitant]
     Active Substance: SULFAMETHOXAZOLE
     Route: 048
     Dates: start: 20230925, end: 20230925
  39. SULFAMETHOXAZOLE [Concomitant]
     Active Substance: SULFAMETHOXAZOLE
     Route: 048
     Dates: start: 20230818, end: 20230818
  40. SODIUM BICARBONATE [Concomitant]
     Active Substance: SODIUM BICARBONATE
     Route: 048
     Dates: start: 20230818, end: 20230818
  41. SODIUM BICARBONATE [Concomitant]
     Active Substance: SODIUM BICARBONATE
     Route: 042
     Dates: start: 20230907, end: 20230907
  42. SODIUM BICARBONATE [Concomitant]
     Active Substance: SODIUM BICARBONATE
     Route: 042
     Dates: start: 20230818, end: 20230818
  43. DOXORUBICIN HYDROCHLORIDE [Concomitant]
     Active Substance: DOXORUBICIN HYDROCHLORIDE
     Route: 042
     Dates: start: 20230907, end: 20230907
  44. DOXORUBICIN HYDROCHLORIDE [Concomitant]
     Active Substance: DOXORUBICIN HYDROCHLORIDE
     Route: 042
     Dates: start: 20230818, end: 20230818
  45. PREDNISONE ACETATE [Concomitant]
     Active Substance: PREDNISONE ACETATE
     Route: 048
     Dates: start: 20230908, end: 20230908
  46. PREDNISONE ACETATE [Concomitant]
     Active Substance: PREDNISONE ACETATE
     Route: 048
     Dates: start: 20230818, end: 20230818
  47. GLUTATHIONE [Concomitant]
     Active Substance: GLUTATHIONE
     Route: 042
     Dates: start: 20230907, end: 20230907
  48. GLUTATHIONE [Concomitant]
     Active Substance: GLUTATHIONE
     Route: 042
     Dates: start: 20230818, end: 20230818
  49. ONDANSETRON HYDROCHLORIDE [Concomitant]
     Active Substance: ONDANSETRON HYDROCHLORIDE
     Route: 042
     Dates: start: 20230907, end: 20230907
  50. ONDANSETRON HYDROCHLORIDE [Concomitant]
     Active Substance: ONDANSETRON HYDROCHLORIDE
     Route: 042
     Dates: start: 20230818, end: 20230818
  51. CLOPIDOGREL BISULFATE [Concomitant]
     Active Substance: CLOPIDOGREL BISULFATE
     Route: 048
     Dates: start: 20230817, end: 20230818
  52. REPAGLINIDE [Concomitant]
     Active Substance: REPAGLINIDE
     Route: 048
     Dates: start: 20230925, end: 20230925
  53. REPAGLINIDE [Concomitant]
     Active Substance: REPAGLINIDE
     Route: 048
     Dates: start: 20230817, end: 20230818
  54. ROSUVASTATIN CALCIUM [Concomitant]
     Active Substance: ROSUVASTATIN CALCIUM
     Route: 048
     Dates: start: 20230925, end: 20230925
  55. ROSUVASTATIN CALCIUM [Concomitant]
     Active Substance: ROSUVASTATIN CALCIUM
     Route: 048
     Dates: start: 20230817, end: 20230818
  56. LACTULOSE [Concomitant]
     Active Substance: LACTULOSE
     Route: 048
     Dates: start: 20230908, end: 20230908
  57. INSULIN GLARGINE [Concomitant]
     Active Substance: INSULIN GLARGINE
     Dosage: DOSE: 08 OTHER
     Route: 058
     Dates: start: 20230908, end: 20230908
  58. INSULIN ASPART [Concomitant]
     Active Substance: INSULIN ASPART
     Dosage: DOSE: 4 OTHER U
     Route: 058
     Dates: start: 20230908, end: 20230908

REACTIONS (2)
  - Lymphocyte count decreased [Recovered/Resolved]
  - Neutrophil count increased [Not Recovered/Not Resolved]

NARRATIVE: CASE EVENT DATE: 20230822
